FAERS Safety Report 7901394-2 (Version None)
Quarter: 2011Q4

REPORT INFORMATION
  Report Type: 
  Country: None (occurrence: None)
  Receive Date: 20111108
  Receipt Date: 20111101
  Transmission Date: 20120403
  Serious: Yes (Other)
  Sender: FDA-Public Use
  Company Number: US-PFIZER INC-2011268420

PATIENT
  Sex: Female
  Weight: 58.957 kg

DRUGS (1)
  1. VANCOMYCIN HCL [Suspect]
     Indication: STAPHYLOCOCCAL INFECTION
     Dosage: UNK
     Dates: start: 20000301, end: 20000101

REACTIONS (1)
  - DRUG INEFFECTIVE [None]
